FAERS Safety Report 8144361-9 (Version None)
Quarter: 2012Q1

REPORT INFORMATION
  Report Type: 
  Country: None (occurrence: None)
  Receive Date: 20120217
  Receipt Date: 20120209
  Transmission Date: 20120608
  Serious: Yes (Hospitalization, Other)
  Sender: FDA-Public Use
  Company Number: US-JNJFOC-20120206825

PATIENT
  Sex: Male
  Weight: 81.65 kg

DRUGS (5)
  1. LYRICA [Concomitant]
     Indication: NEUROPATHY PERIPHERAL
     Route: 048
     Dates: start: 19990101
  2. CYMBALTA [Concomitant]
     Indication: NEUROPATHY PERIPHERAL
     Route: 048
     Dates: start: 20020101
  3. FENTANYL-100 [Suspect]
     Route: 062
  4. FENTANYL-100 [Suspect]
     Indication: BACK PAIN
     Route: 062
  5. FENTANYL-100 [Suspect]
     Indication: BACK PAIN
     Route: 062

REACTIONS (7)
  - BLOOD CHOLESTEROL INCREASED [None]
  - BACK PAIN [None]
  - POOR QUALITY DRUG ADMINISTERED [None]
  - CONVULSION [None]
  - CEREBROVASCULAR ACCIDENT [None]
  - PRODUCT QUALITY ISSUE [None]
  - MUSCULAR WEAKNESS [None]
